FAERS Safety Report 5451987-X (Version None)
Quarter: 2007Q3

REPORT INFORMATION
  Report Type: 
  Country: None (occurrence: None)
  Receive Date: 20070912
  Receipt Date: 20070831
  Transmission Date: 20080115
  Serious: Yes (Hospitalization)
  Sender: FDA-Public Use
  Company Number: GXKR2007SA07595

PATIENT
  Age: 46 Year
  Sex: Male

DRUGS (2)
  1. CIPROFLOXACIN [Suspect]
     Indication: URINARY TRACT INFECTION PSEUDOMONAL
     Dosage: 250 MG, BID, ORAL
     Route: 048
  2. ACYCLOVIR [Concomitant]

REACTIONS (8)
  - ASTERIXIS [None]
  - ASTHENIA [None]
  - CONFUSIONAL STATE [None]
  - DISTURBANCE IN ATTENTION [None]
  - METABOLIC ENCEPHALOPATHY [None]
  - MYOCLONUS [None]
  - PARAESTHESIA [None]
  - SOMNOLENCE [None]
